FAERS Safety Report 26176668 (Version 2)
Quarter: 2025Q4

REPORT INFORMATION
  Report Type: Spontaneous
  Country: US (occurrence: US)
  Receive Date: 20251218
  Receipt Date: 20251222
  Transmission Date: 20260117
  Serious: Yes (Other)
  Sender: APELLIS PHARMACEUTICALS
  Company Number: US-APELLIS-2025-APL-0002426

PATIENT

DRUGS (24)
  1. SYFOVRE [Suspect]
     Active Substance: PEGCETACOPLAN
     Indication: Dry age-related macular degeneration
     Route: 031
  2. LUTEIN\MINERALS\VITAMINS\ZEAXANTHIN [Concomitant]
     Active Substance: LUTEIN\MINERALS\VITAMINS\ZEAXANTHIN
     Indication: Product used for unknown indication
     Dosage: 1 TABLET TWICE A DAY BID
  3. ELIQUIS [Concomitant]
     Active Substance: APIXABAN
     Indication: Product used for unknown indication
     Dosage: 2.5 MG ORAL TABLET TABLE
  4. FUROSEMIDE [Concomitant]
     Active Substance: FUROSEMIDE
     Indication: Product used for unknown indication
     Dosage: 1 TAB 20 MG TABLET
  5. ALPRAZOLAM [Concomitant]
     Active Substance: ALPRAZOLAM
     Indication: Product used for unknown indication
     Dosage: 0.25 MG TABLET
  6. LOPERAMIDE HYDROCHLORIDE [Concomitant]
     Active Substance: LOPERAMIDE HYDROCHLORIDE
     Indication: Product used for unknown indication
     Dosage: 2 MG ORAL CAPSULE.
  7. MELATONIN [Concomitant]
     Active Substance: MELATONIN
     Indication: Product used for unknown indication
     Dosage: 3MG TABLET
  8. METOPROLOL TARTRATE [Concomitant]
     Active Substance: METOPROLOL TARTRATE
     Indication: Product used for unknown indication
     Dosage: 50 MG TABLET EXTENDED RELEASE 24 HR
  9. PANTOPRAZOLE [Concomitant]
     Active Substance: PANTOPRAZOLE
     Indication: Product used for unknown indication
     Dosage: 40 MG TABLET, DELAYED RELEASE
  10. POTASSIUM CHLORIDE [Concomitant]
     Active Substance: POTASSIUM CHLORIDE
     Indication: Product used for unknown indication
     Dosage: 10 MEQ TABLET EXTENDED RELEASE
  11. SPIRONOLACTONE [Concomitant]
     Active Substance: SPIRONOLACTONE
     Indication: Product used for unknown indication
     Dosage: 25 MG ORAL TABLET
  12. TAMOXIFEN CITRATE [Concomitant]
     Active Substance: TAMOXIFEN CITRATE
     Indication: Product used for unknown indication
     Dosage: 10 MG ORAL TABLET
  13. TAMOXIFEN CITRATE [Concomitant]
     Active Substance: TAMOXIFEN CITRATE
     Dosage: 15.2 MG
  14. ARNICARE [Concomitant]
     Active Substance: HOMEOPATHICS
     Indication: Product used for unknown indication
  15. POLYETHYLENE GLYCOL [Concomitant]
     Active Substance: POLYETHYLENE GLYCOL
     Indication: Product used for unknown indication
     Dosage: 3350 PWDR 18
  16. QUETIAPINE [Concomitant]
     Active Substance: QUETIAPINE
     Indication: Product used for unknown indication
     Dosage: 25 MG
  17. ZOLOFT [Concomitant]
     Active Substance: SERTRALINE HYDROCHLORIDE
     Indication: Product used for unknown indication
     Dosage: 25MG ORAL TABLET.
  18. ATIVAN [Concomitant]
     Active Substance: LORAZEPAM
     Indication: Product used for unknown indication
     Dosage: 1 MG
  19. DIPHEN [Concomitant]
     Active Substance: ACETAMINOPHEN\BACITRACIN ZINC\BENZALKONIUM CHLORIDE\BENZOCAINE\BISMUTH SUBSALICYLATE\CALCIUM CARBONA
     Indication: Product used for unknown indication
     Dosage: 25 MG
  20. ACETAMINOPHEN\HYDROCODONE [Concomitant]
     Active Substance: ACETAMINOPHEN\HYDROCODONE
     Indication: Product used for unknown indication
     Dosage: 5-325 1/2
  21. MILK OF MAGNESIA [Concomitant]
     Active Substance: MAGNESIUM HYDROXIDE
     Indication: Product used for unknown indication
  22. ONDANSETRON [Concomitant]
     Active Substance: ONDANSETRON
     Indication: Product used for unknown indication
     Dosage: 4 MG
  23. REFRESH P.M. [Concomitant]
     Active Substance: MINERAL OIL\PETROLATUM
     Indication: Product used for unknown indication
     Dosage: 1 OU
  24. CALCIUM [Concomitant]
     Active Substance: CALCIUM
     Indication: Product used for unknown indication
     Dosage: 500 MG

REACTIONS (23)
  - Vitreous detachment [Unknown]
  - Dry age-related macular degeneration [Unknown]
  - Iridocyclitis [Unknown]
  - Punctate keratitis [Unknown]
  - Punctate keratitis [Unknown]
  - Vitreous detachment [Unknown]
  - Dry age-related macular degeneration [Unknown]
  - Deafness [Unknown]
  - Disease progression [Unknown]
  - Lagophthalmos [Unknown]
  - Vitreous floaters [Unknown]
  - Dry eye [Unknown]
  - Disease progression [Unknown]
  - Dry eye [Unknown]
  - Lagophthalmos [Unknown]
  - Dyspnoea [Unknown]
  - Arthralgia [Unknown]
  - Back pain [Unknown]
  - Arcus lipoides [Unknown]
  - Arcus lipoides [Unknown]
  - Eye complication associated with device [Unknown]
  - Dry age-related macular degeneration [Unknown]
  - Disease progression [Unknown]
